FAERS Safety Report 7514450-8 (Version None)
Quarter: 2011Q2

REPORT INFORMATION
  Report Type: 
  Country: None (occurrence: None)
  Receive Date: 20110526
  Receipt Date: 20110526
  Transmission Date: 20111010
  Serious: No
  Sender: FDA-Public Use
  Company Number: None

PATIENT
  Sex: Male
  Weight: 69.4003 kg

DRUGS (1)
  1. ZOLPIDEM [Suspect]
     Indication: SLEEP DISORDER
     Dosage: 5MG 1 TABLET @BT PO
     Route: 048
     Dates: start: 20110226

REACTIONS (2)
  - HALLUCINATION [None]
  - MEMORY IMPAIRMENT [None]
